FAERS Safety Report 25262023 (Version 1)
Quarter: 2025Q2

REPORT INFORMATION
  Report Type: Spontaneous
  Country: CA (occurrence: CA)
  Receive Date: 20250502
  Receipt Date: 20250502
  Transmission Date: 20250716
  Serious: Yes (Disabling, Other)
  Sender: ADVANZ PHARMA
  Company Number: CA-SA-2025SA116151

PATIENT

DRUGS (4)
  1. HYDROXYCHLOROQUINE [Suspect]
     Active Substance: HYDROXYCHLOROQUINE
     Indication: Product used for unknown indication
     Route: 065
  2. ABRILADA [Concomitant]
     Active Substance: ADALIMUMAB-AFZB
     Indication: Rheumatoid arthritis
     Route: 058
     Dates: start: 20250128
  3. ABRILADA [Concomitant]
     Active Substance: ADALIMUMAB-AFZB
     Route: 058
     Dates: start: 20250408
  4. METHOTREXATE [Concomitant]
     Active Substance: METHOTREXATE
     Indication: Rheumatoid arthritis
     Route: 058
     Dates: start: 202312

REACTIONS (6)
  - Rheumatoid arthritis [Unknown]
  - Dyspnoea [Not Recovered/Not Resolved]
  - Dyspepsia [Unknown]
  - Decreased appetite [Unknown]
  - Depression [Unknown]
  - Weight decreased [Unknown]

NARRATIVE: CASE EVENT DATE: 20250101
